FAERS Safety Report 12245675 (Version 2)
Quarter: 2016Q2

REPORT INFORMATION
  Report Type: Spontaneous
  Country: US (occurrence: US)
  Receive Date: 20160407
  Receipt Date: 20160411
  Transmission Date: 20160815
  Serious: No
  Sender: FDA-Public Use
  Company Number: US-GLAXOSMITHKLINE-US2016045527

PATIENT
  Age: 55 Year
  Sex: Female

DRUGS (2)
  1. FLONASE [Suspect]
     Active Substance: FLUTICASONE PROPIONATE
     Indication: HYPERSENSITIVITY
     Dosage: UNK
     Dates: start: 201603
  2. FLONASE [Suspect]
     Active Substance: FLUTICASONE PROPIONATE
     Indication: INFLUENZA

REACTIONS (5)
  - Lacrimation increased [Recovered/Resolved]
  - Respiratory tract congestion [Recovering/Resolving]
  - Eye pruritus [Recovered/Resolved]
  - Drug ineffective [Not Recovered/Not Resolved]
  - Cough [Not Recovered/Not Resolved]
